FAERS Safety Report 25331666 (Version 1)
Quarter: 2025Q2

REPORT INFORMATION
  Report Type: Spontaneous
  Country: CA (occurrence: CA)
  Receive Date: 20250519
  Receipt Date: 20250519
  Transmission Date: 20250716
  Serious: Yes (Other)
  Sender: PFIZER
  Company Number: CA-PFIZER INC-202500103065

PATIENT
  Age: 1 Year
  Sex: Male
  Weight: 8 kg

DRUGS (27)
  1. SIROLIMUS [Suspect]
     Active Substance: SIROLIMUS
     Indication: Prophylaxis against graft versus host disease
     Dosage: 1 MG, 1X/DAY
     Route: 048
  2. ACETAMINOPHEN [Concomitant]
     Active Substance: ACETAMINOPHEN
  3. ALEMTUZUMAB [Concomitant]
     Active Substance: ALEMTUZUMAB
  4. AMLODIPINE [Concomitant]
     Active Substance: AMLODIPINE BESYLATE
     Route: 065
  5. BETAMETHASONE [Concomitant]
     Active Substance: BETAMETHASONE
  6. BUSULFAN [Concomitant]
     Active Substance: BUSULFAN
  7. CEFEPIME [Concomitant]
     Active Substance: CEFEPIME HYDROCHLORIDE
  8. CHOLECALCIFEROL [Concomitant]
     Active Substance: CHOLECALCIFEROL
  9. DEXMEDETOMIDINE [Concomitant]
     Active Substance: DEXMEDETOMIDINE
  10. DIPHENHYDRAMINE [Concomitant]
     Active Substance: DIPHENHYDRAMINE
  11. FAMOTIDINE [Concomitant]
     Active Substance: FAMOTIDINE
  12. FLUCONAZOLE [Concomitant]
     Active Substance: FLUCONAZOLE
  13. FLUDARABINE [Concomitant]
     Active Substance: FLUDARABINE PHOSPHATE
  14. FUROSEMIDE [Concomitant]
     Active Substance: FUROSEMIDE
     Route: 065
  15. HYDROMORPHONE [Concomitant]
     Active Substance: HYDROMORPHONE
  16. KETAMINE [Concomitant]
     Active Substance: KETAMINE
  17. LEVETIRACETAM [Concomitant]
     Active Substance: LEVETIRACETAM
  18. LORAZEPAM [Concomitant]
     Active Substance: LORAZEPAM
     Route: 065
  19. METHYLPREDNISOLONE [Concomitant]
     Active Substance: METHYLPREDNISOLONE
  20. METOCLOPRAMIDE [Concomitant]
     Active Substance: METOCLOPRAMIDE
  21. MORPHINE [Concomitant]
     Active Substance: MORPHINE
  22. MYCOPHENOLIC ACID [Concomitant]
     Active Substance: MYCOPHENOLIC ACID
  23. ONDANSETRON [Concomitant]
     Active Substance: ONDANSETRON
  24. POLYETHYLENE GLYCOL, UNSPECIFIED [Concomitant]
     Active Substance: POLYETHYLENE GLYCOL, UNSPECIFIED
  25. POTASSIUM [Concomitant]
     Active Substance: POTASSIUM
  26. PREDNISONE [Concomitant]
     Active Substance: PREDNISONE
  27. TACROLIMUS [Concomitant]
     Active Substance: TACROLIMUS

REACTIONS (2)
  - Thrombocytopenia [Unknown]
  - Off label use [Unknown]
